FAERS Safety Report 18319789 (Version 1)
Quarter: 2020Q3

REPORT INFORMATION
  Report Type: Spontaneous
  Country: JP (occurrence: JP)
  Receive Date: 20200928
  Receipt Date: 20200928
  Transmission Date: 20201103
  Serious: Yes (Other)
  Sender: FDA-Public Use
  Company Number: NVSJ2020JP009345

PATIENT
  Sex: Male

DRUGS (2)
  1. ZOMETA [Suspect]
     Active Substance: ZOLEDRONIC ACID
     Indication: METASTASES TO BONE
     Dosage: UNK, Q4W
     Route: 041
  2. ZOMETA [Suspect]
     Active Substance: ZOLEDRONIC ACID
     Dosage: UNK, Q4W
     Route: 041

REACTIONS (4)
  - Osteonecrosis of jaw [Unknown]
  - Swelling face [Unknown]
  - Abscess jaw [Unknown]
  - Gingival erythema [Unknown]
